FAERS Safety Report 17330475 (Version 1)
Quarter: 2020Q1

REPORT INFORMATION
  Report Type: Spontaneous
  Country: US (occurrence: US)
  Receive Date: 20200127
  Receipt Date: 20200127
  Transmission Date: 20200409
  Serious: No
  Sender: FDA-Public Use
  Company Number: US-GALDERMA-US19057054

PATIENT
  Age: 26 Year
  Sex: Female

DRUGS (6)
  1. CYCLOSPORINE. [Concomitant]
     Active Substance: CYCLOSPORINE
     Indication: RASH ERYTHEMATOUS
     Dosage: 50MG
     Route: 065
  2. PIMECROLIMUS. [Concomitant]
     Active Substance: PIMECROLIMUS
     Indication: RASH ERYTHEMATOUS
     Route: 061
  3. PIMECROLIMUS. [Concomitant]
     Active Substance: PIMECROLIMUS
     Indication: SKIN PLAQUE
  4. DESONIDE (DESONIDE) 0.05% [Suspect]
     Active Substance: DESONIDE
     Indication: SKIN PLAQUE
  5. DESONIDE (DESONIDE) 0.05% [Suspect]
     Active Substance: DESONIDE
     Indication: RASH ERYTHEMATOUS
     Route: 061
  6. CYCLOSPORINE. [Concomitant]
     Active Substance: CYCLOSPORINE
     Indication: SKIN PLAQUE

REACTIONS (4)
  - Rash erythematous [Recovering/Resolving]
  - Condition aggravated [Recovering/Resolving]
  - Skin plaque [Recovering/Resolving]
  - Intentional product use issue [Recovered/Resolved]
